FAERS Safety Report 9357803 (Version 1)
Quarter: 2013Q2

REPORT INFORMATION
  Report Type: Spontaneous
  Country: US (occurrence: US)
  Receive Date: 20130620
  Receipt Date: 20130620
  Transmission Date: 20140414
  Serious: Yes (Death, Other)
  Sender: FDA-Public Use
  Company Number: US-ELI_LILLY_AND_COMPANY-US201306005594

PATIENT
  Age: 78 Year
  Sex: Female

DRUGS (2)
  1. EFFIENT [Suspect]
     Indication: PERCUTANEOUS CORONARY INTERVENTION
     Dosage: 10 MG, UNKNOWN
     Route: 065
     Dates: start: 20130412
  2. TICAGRELOR [Concomitant]
     Dosage: 10 UNK, UNK
     Dates: start: 20130408, end: 20130412

REACTIONS (1)
  - Cardiac arrest [Fatal]
